FAERS Safety Report 5429497-5 (Version None)
Quarter: 2007Q3

REPORT INFORMATION
  Report Type: 
  Country: None (occurrence: None)
  Receive Date: 20070829
  Receipt Date: 20070823
  Transmission Date: 20080115
  Serious: Yes (Hospitalization)
  Sender: FDA-Public Use
  Company Number: B0484815A

PATIENT
  Age: 20 Year
  Sex: Female

DRUGS (1)
  1. AUGMENTIN '125' [Suspect]
     Indication: GINGIVITIS
     Route: 048
     Dates: start: 20070809, end: 20070813

REACTIONS (7)
  - ANAPHYLACTIC SHOCK [None]
  - CHEILITIS [None]
  - DYSPHAGIA [None]
  - DYSPNOEA [None]
  - ERYTHEMA OF EYELID [None]
  - HYPOTENSION [None]
  - PAIN IN EXTREMITY [None]
